FAERS Safety Report 23873632 (Version 1)
Quarter: 2024Q2

REPORT INFORMATION
  Report Type: Spontaneous
  Country: US (occurrence: US)
  Receive Date: 20240520
  Receipt Date: 20240520
  Transmission Date: 20240716
  Serious: No
  Sender: FDA-Public Use
  Company Number: US-Stemline Therapeutics, Inc.-2024ST001411

PATIENT
  Age: 85 Year
  Sex: Male

DRUGS (9)
  1. ORSERDU [Suspect]
     Active Substance: ELACESTRANT
     Indication: Product used for unknown indication
     Dosage: 345 MG, ORAL, ONCE DAILY
     Route: 048
  2. GLIPIZIDE\METFORMIN HYDROCHLORIDE [Concomitant]
     Active Substance: GLIPIZIDE\METFORMIN HYDROCHLORIDE
     Indication: Product used for unknown indication
     Dosage: ORAL, 2.5-250MG, UNKNOWN
     Route: 048
  3. LISINOPRIL [Concomitant]
     Active Substance: LISINOPRIL
     Indication: Product used for unknown indication
     Dosage: ORAL, 20MG, UNKNOWN
     Route: 048
  4. PHENAZOPYRIDINE HCL [Concomitant]
     Active Substance: PHENAZOPYRIDINE HYDROCHLORIDE
     Indication: Product used for unknown indication
     Dosage: ORAL, 200MG, UNKNOWN
     Route: 048
  5. HYDROCHLOROTHIAZIDE [Concomitant]
     Active Substance: HYDROCHLOROTHIAZIDE
     Indication: Product used for unknown indication
     Dosage: ORAL, 25MG, UNKNOWN
     Route: 048
  6. DOXAZOSIN MESYLATE [Concomitant]
     Active Substance: DOXAZOSIN MESYLATE
     Indication: Product used for unknown indication
     Dosage: ORAL, 4MG, UNKNOWN
     Route: 048
  7. OMEPRAZOLE [Concomitant]
     Active Substance: DONEPEZIL HYDROCHLORIDE\OMEPRAZOLE\OMEPRAZOLE MAGNESIUM
     Indication: Product used for unknown indication
     Dosage: ORAL, 40MG, UNKNOWN
     Route: 048
  8. Natural Fiber Therapy [Concomitant]
     Indication: Product used for unknown indication
     Dosage: ORAL, 40MG, UNKNOWN
     Route: 048
  9. TYLENOL EXTRA STRENGTH [Concomitant]
     Active Substance: ACETAMINOPHEN
     Indication: Product used for unknown indication
     Dosage: ORAL, 500MG, UNKNOWN
     Route: 048

REACTIONS (1)
  - Sputum increased [Not Recovered/Not Resolved]
